FAERS Safety Report 9614333 (Version 1)
Quarter: 2013Q4

REPORT INFORMATION
  Report Type: Spontaneous
  Country: VE (occurrence: VE)
  Receive Date: 20131011
  Receipt Date: 20131011
  Transmission Date: 20140711
  Serious: Yes (Other)
  Sender: FDA-Public Use
  Company Number: VE-JNJFOC-20131004577

PATIENT
  Sex: Male
  Weight: 50 kg

DRUGS (2)
  1. PRONEURAX LP [Suspect]
     Indication: DEMENTIA ALZHEIMER^S TYPE
     Route: 048
     Dates: start: 2009, end: 201308
  2. VITAMIN B [Concomitant]
     Route: 065

REACTIONS (6)
  - Cardiac pacemaker insertion [Recovered/Resolved]
  - Fatigue [Unknown]
  - Treatment noncompliance [Unknown]
  - Insomnia [Unknown]
  - Restlessness [Unknown]
  - Stereotypy [Unknown]
